FAERS Safety Report 10642173 (Version 1)
Quarter: 2014Q4

REPORT INFORMATION
  Report Type: Spontaneous
  Country: DE (occurrence: DE)
  Receive Date: 20141210
  Receipt Date: 20141210
  Transmission Date: 20150529
  Serious: Yes (Other)
  Sender: FDA-Public Use
  Company Number: DE-ROCHE-1503985

PATIENT
  Sex: Female
  Weight: 100 kg

DRUGS (1)
  1. XOLAIR [Suspect]
     Active Substance: OMALIZUMAB
     Indication: MASTOCYTOSIS
     Route: 065

REACTIONS (3)
  - Product use issue [Unknown]
  - Drug intolerance [Unknown]
  - Mastocytosis [Not Recovered/Not Resolved]
